FAERS Safety Report 20913625 (Version 2)
Quarter: 2022Q3

REPORT INFORMATION
  Report Type: Report from Study
  Country: US (occurrence: US)
  Receive Date: 20220604
  Receipt Date: 20220704
  Transmission Date: 20221027
  Serious: Yes (Hospitalization, Other)
  Sender: FDA-Public Use
  Company Number: US-CELGENE-USA-20220203882

PATIENT
  Age: 80 Year
  Sex: Male
  Weight: 108 kg

DRUGS (23)
  1. REVLIMID [Suspect]
     Active Substance: LENALIDOMIDE
     Indication: Plasma cell myeloma
     Dosage: 10 MILLIGRAM
     Route: 048
     Dates: start: 201105
  2. REVLIMID [Suspect]
     Active Substance: LENALIDOMIDE
     Indication: Plasma cell myeloma in remission
     Dosage: 10 MILLIGRAM
     Route: 048
     Dates: start: 201207
  3. REVLIMID [Suspect]
     Active Substance: LENALIDOMIDE
     Dosage: 5 MILLIGRAM
     Route: 048
     Dates: start: 201301
  4. REVLIMID [Suspect]
     Active Substance: LENALIDOMIDE
     Dosage: 10 MILLIGRAM
     Route: 048
     Dates: start: 201303
  5. REVLIMID [Suspect]
     Active Substance: LENALIDOMIDE
     Dosage: 5 MILLIGRAM
     Route: 048
     Dates: start: 201304
  6. REVLIMID [Suspect]
     Active Substance: LENALIDOMIDE
     Dosage: 5 MILLIGRAM
     Route: 048
     Dates: start: 201506
  7. REVLIMID [Suspect]
     Active Substance: LENALIDOMIDE
     Dosage: 7.5 MILLIGRAM
     Route: 048
     Dates: start: 201901
  8. REVLIMID [Suspect]
     Active Substance: LENALIDOMIDE
     Dosage: 5 MILLIGRAM
     Route: 048
     Dates: start: 201903
  9. REVLIMID [Suspect]
     Active Substance: LENALIDOMIDE
     Route: 048
  10. REVLIMID [Suspect]
     Active Substance: LENALIDOMIDE
     Dosage: FREQUENCY: DAILY
     Route: 048
  11. ASPIRIN [Concomitant]
     Active Substance: ASPIRIN
     Indication: Product used for unknown indication
     Dosage: FREQUENCY TEXT: NOT PROOVIDED?81 MILLIGRAM
     Route: 048
  12. NEURONTIN [Concomitant]
     Active Substance: GABAPENTIN
     Indication: Product used for unknown indication
     Dosage: FREQUENCY TEXT: NOT PROVIDED
     Route: 048
  13. LOSARTAN [Concomitant]
     Active Substance: LOSARTAN
     Indication: Product used for unknown indication
     Dosage: FREQUENCY TEXT: NOT PROVIDED?10 0 - 12.5 MILLIGRAM
     Route: 048
  14. LOSARTAN [Concomitant]
     Active Substance: LOSARTAN
     Dosage: FREQUENCY TEXT: NOT PROVIDED?10 MILLIGRAM
     Route: 048
  15. CLONAZEPAM [Concomitant]
     Active Substance: CLONAZEPAM
     Indication: Product used for unknown indication
     Dosage: FREQUENCY TEXT: NOT PROVIDED? ODT
     Route: 048
  16. CLONAZEPAM [Concomitant]
     Active Substance: CLONAZEPAM
     Dosage: FREQUENCY TEXT: NOT PROVIDED?10 MILLIGRAM
     Route: 048
  17. LOVENOX [Concomitant]
     Active Substance: ENOXAPARIN SODIUM
     Indication: Product used for unknown indication
     Dosage: FREQUENCY TEXT: NOT PROVIDED?40 MILLIGRAM
     Route: 048
  18. LOVENOX [Concomitant]
     Active Substance: ENOXAPARIN SODIUM
     Dosage: FREQUENCY TEXT: NOT PROVIDED?10 MILLIGRAM
     Route: 048
  19. LOVENOX [Concomitant]
     Active Substance: ENOXAPARIN SODIUM
     Dosage: PRE-FILLED SYRINGE
     Route: 065
  20. FLOMAX [Concomitant]
     Active Substance: TAMSULOSIN HYDROCHLORIDE
     Indication: Product used for unknown indication
     Dosage: FREQUENCY TEXT: NOT PROVIDED?0.4 MILLIGRAM
     Route: 048
  21. FLOMAX [Concomitant]
     Active Substance: TAMSULOSIN HYDROCHLORIDE
     Dosage: FREQUENCY TEXT: NOT PROVIDED?10 MILLIGRAM
     Route: 048
  22. ZETIA [Concomitant]
     Active Substance: EZETIMIBE
     Indication: Product used for unknown indication
     Route: 065
  23. LOSARTAN AND HYDROCHLOROTHIAZIDE [Concomitant]
     Active Substance: HYDROCHLOROTHIAZIDE\LOSARTAN POTASSIUM
     Indication: Product used for unknown indication
     Dosage: 100MG - 12.5MG
     Route: 065

REACTIONS (11)
  - Cellulitis [Unknown]
  - Bladder cancer [Unknown]
  - Dizziness [Unknown]
  - Deafness [Unknown]
  - Nasopharyngitis [Unknown]
  - Gait disturbance [Unknown]
  - Blood cholesterol increased [Unknown]
  - Micturition urgency [Unknown]
  - Ligament sprain [Unknown]
  - Fall [Unknown]
  - Diarrhoea [Unknown]

NARRATIVE: CASE EVENT DATE: 20211201
